FAERS Safety Report 22523007 (Version 1)
Quarter: 2023Q2

REPORT INFORMATION
  Report Type: Other
  Country: IT (occurrence: IT)
  Receive Date: 20230606
  Receipt Date: 20230606
  Transmission Date: 20230721
  Serious: Yes (Other)
  Sender: FDA-Public Use
  Company Number: IT-DEXPHARM-20231369

PATIENT
  Age: 60 Year
  Sex: Female

DRUGS (5)
  1. DEXAMETHASONE [Interacting]
     Active Substance: DEXAMETHASONE
     Indication: Plasma cell myeloma
     Dosage: MM WAS TREATED WITH LENALIDOMIDE, DEXAMETHASONE, BORTEZOMIB, AND ZOLEDRONIC ACID FOR 18 MONTHS.
     Dates: start: 2016
  2. LENALIDOMIDE [Interacting]
     Active Substance: LENALIDOMIDE
     Indication: Plasma cell myeloma
     Dosage: MM WAS TREATED WITH LENALIDOMIDE, DEXAMETHASONE, BORTEZOMIB, AND ZOLEDRONIC ACID FOR 18 MONTHS.
     Dates: start: 2016
  3. LENALIDOMIDE [Interacting]
     Active Substance: LENALIDOMIDE
     Indication: Plasma cell myeloma
     Dosage: FROM OCT2020, SHE WAS TREATED WITH LENALIDOMIDE MONOTHERAPY AND MYELOMA WAS STABLE
     Dates: start: 202010
  4. BORTEZOMIB [Interacting]
     Active Substance: BORTEZOMIB
     Indication: Plasma cell myeloma
     Dosage: MM WAS TREATED WITH LENALIDOMIDE, DEXAMETHASONE, BORTEZOMIB, AND ZOLEDRONIC ACID FOR 18 MONTHS.
     Dates: start: 2016
  5. ZOLEDRONIC ACID [Interacting]
     Active Substance: ZOLEDRONIC ACID
     Indication: Plasma cell myeloma
     Dosage: MM WAS TREATED WITH LENALIDOMIDE, DEXAMETHASONE, BORTEZOMIB, AND ZOLEDRONIC ACID FOR 18 MONTHS.
     Dates: start: 2016

REACTIONS (2)
  - Osteonecrosis of jaw [Unknown]
  - Drug interaction [Unknown]

NARRATIVE: CASE EVENT DATE: 20220101
